FAERS Safety Report 12679198 (Version 1)
Quarter: 2016Q3

REPORT INFORMATION
  Report Type: Spontaneous
  Country: TW (occurrence: TW)
  Receive Date: 20160824
  Receipt Date: 20160824
  Transmission Date: 20161109
  Serious: Yes (Death, Hospitalization, Other)
  Sender: FDA-Public Use
  Company Number: TW-PFIZER INC-2016383633

PATIENT
  Age: 67 Year
  Sex: Male
  Weight: 85 kg

DRUGS (1)
  1. SUNITINIB MALATE. [Suspect]
     Active Substance: SUNITINIB MALATE
     Indication: METASTATIC RENAL CELL CARCINOMA
     Dosage: 37.5 MG, UNK
     Dates: start: 201111

REACTIONS (9)
  - Septic shock [Unknown]
  - Deep vein thrombosis [Unknown]
  - Urine output decreased [Unknown]
  - Cerebral haemorrhage [Fatal]
  - Pulmonary embolism [Unknown]
  - Superior vena cava syndrome [Unknown]
  - Gastrointestinal haemorrhage [Unknown]
  - Intra-abdominal haematoma [Unknown]
  - Pneumonia [Unknown]

NARRATIVE: CASE EVENT DATE: 201112
